FAERS Safety Report 5853281-1 (Version None)
Quarter: 2008Q3

REPORT INFORMATION
  Report Type: 
  Country: None (occurrence: None)
  Receive Date: 20080815
  Receipt Date: 20080806
  Transmission Date: 20090109
  Serious: Yes (Other)
  Sender: FDA-Public Use
  Company Number: AEUSA200800095

PATIENT
  Age: 43 Year
  Sex: Female
  Weight: 72.1219 kg

DRUGS (8)
  1. GAMUNEX [Suspect]
     Indication: IMMUNODEFICIENCY COMMON VARIABLE
     Dosage: 2 GM; QM; IV
     Route: 042
     Dates: start: 20070831, end: 20071227
  2. PROPRANOLOL [Concomitant]
  3. NASAREL [Concomitant]
  4. SOLU-CORTEF [Concomitant]
  5. LAMICTAL [Concomitant]
  6. SINGULAIR [Concomitant]
  7. PROAIR HFA [Concomitant]
  8. FEXOFENADINE [Concomitant]

REACTIONS (1)
  - HERPES SIMPLEX SEROLOGY POSITIVE [None]
